FAERS Safety Report 23836412 (Version 1)
Quarter: 2024Q2

REPORT INFORMATION
  Report Type: Spontaneous
  Country: US (occurrence: US)
  Receive Date: 20240509
  Receipt Date: 20240509
  Transmission Date: 20240715
  Serious: Yes (Hospitalization, Other)
  Sender: FDA-Public Use
  Company Number: US-PROCTER_AND_GAMBLE-GS24014412

PATIENT
  Age: 17 Year
  Sex: Female

DRUGS (1)
  1. SECRET [Suspect]
     Active Substance: ALUMINUM ZIRCONIUM TETRACHLOROHYDREX GLY
     Dosage: 1 APPLIC, 2 /DAY, 2 SWIPES
     Route: 061
     Dates: start: 20240108, end: 20240112

REACTIONS (7)
  - Staphylococcal abscess [Unknown]
  - Pain of skin [Recovering/Resolving]
  - Scar [Recovering/Resolving]
  - Ultrasound Doppler abnormal [Unknown]
  - Product contamination microbial [Unknown]
  - Staphylococcus test positive [Unknown]
  - Skin disorder [Recovering/Resolving]

NARRATIVE: CASE EVENT DATE: 20240101
